FAERS Safety Report 18792823 (Version 1)
Quarter: 2021Q1

REPORT INFORMATION
  Report Type: Spontaneous
  Country: AU (occurrence: AU)
  Receive Date: 20210127
  Receipt Date: 20210127
  Transmission Date: 20210419
  Serious: Yes (Other)
  Sender: FDA-Public Use
  Company Number: AU-SA-2021SA024694

PATIENT
  Sex: Male

DRUGS (1)
  1. DUPIXENT [Suspect]
     Active Substance: DUPILUMAB

REACTIONS (6)
  - Depression [Unknown]
  - Fatigue [Unknown]
  - Asthma [Unknown]
  - Diabetes mellitus [Unknown]
  - Sleep disorder [Unknown]
  - Dyspnoea [Unknown]
